FAERS Safety Report 5865965-X (Version None)
Quarter: 2008Q3

REPORT INFORMATION
  Report Type: 
  Country: None (occurrence: None)
  Receive Date: 20080829
  Receipt Date: 20080818
  Transmission Date: 20090109
  Serious: Yes (Other)
  Sender: FDA-Public Use
  Company Number: US-PFIZER INC-2008050351

PATIENT
  Sex: Female
  Weight: 86.6 kg

DRUGS (5)
  1. CHANTIX [Suspect]
     Indication: SMOKING CESSATION THERAPY
     Route: 048
  2. LYRICA [Concomitant]
  3. GEODON [Concomitant]
  4. SEROQUEL [Concomitant]
  5. TOPAMAX [Concomitant]

REACTIONS (4)
  - BIPOLAR DISORDER [None]
  - HOMICIDAL IDEATION [None]
  - HYPOAESTHESIA [None]
  - OBSESSIVE-COMPULSIVE DISORDER [None]
